FAERS Safety Report 15998774 (Version 1)
Quarter: 2019Q1

REPORT INFORMATION
  Report Type: Report from Study
  Country: FR (occurrence: FR)
  Receive Date: 20190223
  Receipt Date: 20190223
  Transmission Date: 20190418
  Serious: Yes (Other)
  Sender: FDA-Public Use
  Company Number: FR-MYLANLABS-2019M1016129

PATIENT
  Age: 50 Year
  Sex: Male

DRUGS (7)
  1. LAMIVUDINE. [Suspect]
     Active Substance: LAMIVUDINE
     Indication: HIV INFECTION
     Route: 065
  2. STAVUDINE. [Suspect]
     Active Substance: STAVUDINE
     Indication: HIV INFECTION
     Route: 065
  3. ZIDOVUDINE. [Suspect]
     Active Substance: ZIDOVUDINE
     Indication: HIV INFECTION
     Route: 065
  4. INDINAVIR SULFATE W/RITONAVIR [Concomitant]
     Indication: HIV INFECTION
     Route: 065
  5. ABACAVIR. [Suspect]
     Active Substance: ABACAVIR
     Indication: HIV INFECTION
     Route: 065
  6. NELFINAVIR [Concomitant]
     Active Substance: NELFINAVIR
     Indication: HIV INFECTION
     Route: 065
  7. AMPRENAVIR [Concomitant]
     Active Substance: AMPRENAVIR
     Indication: HIV INFECTION
     Route: 065

REACTIONS (2)
  - Pathogen resistance [Unknown]
  - Treatment failure [Unknown]
